FAERS Safety Report 7801666-6 (Version None)
Quarter: 2011Q4

REPORT INFORMATION
  Report Type: 
  Country: None (occurrence: None)
  Receive Date: 20111007
  Receipt Date: 20110929
  Transmission Date: 20120403
  Serious: Yes (Hospitalization, Other)
  Sender: FDA-Public Use
  Company Number: US-ASTELLAS-2011US004330

PATIENT
  Sex: Male
  Weight: 85 kg

DRUGS (9)
  1. LOSARTAN POTASSIUM [Concomitant]
     Indication: PRODUCT USED FOR UNKNOWN INDICATION
     Dosage: UNK
     Route: 065
  2. ENALAPRIL MALEATE [Concomitant]
     Indication: PRODUCT USED FOR UNKNOWN INDICATION
     Dosage: 5 MG, UID/QD
     Route: 065
  3. PROGRAF [Suspect]
     Indication: HEART TRANSPLANT
     Dosage: 3 MG, BID
     Route: 048
     Dates: start: 19930211
  4. PROGRAF [Suspect]
     Dosage: 0.5 MG, BID
     Route: 065
  5. PRAVASTATIN [Concomitant]
     Indication: PRODUCT USED FOR UNKNOWN INDICATION
     Dosage: 10 MG, UID/QD
     Route: 065
  6. DILTIAZEM HCL [Concomitant]
     Indication: PRODUCT USED FOR UNKNOWN INDICATION
     Dosage: 90 MG, BID
     Route: 065
  7. PROGRAF [Suspect]
     Dosage: 2 MG, BID
     Route: 048
  8. ASPIRIN [Concomitant]
     Indication: PRODUCT USED FOR UNKNOWN INDICATION
     Dosage: UNK
     Route: 065
  9. OSCAL [Concomitant]
     Indication: PRODUCT USED FOR UNKNOWN INDICATION
     Dosage: UNK
     Route: 065

REACTIONS (21)
  - DELIRIUM TREMENS [None]
  - LYMPHOPROLIFERATIVE DISORDER [None]
  - ALCOHOL WITHDRAWAL SYNDROME [None]
  - GASTRIC POLYPS [None]
  - ARTHRITIS [None]
  - SLEEP APNOEA SYNDROME [None]
  - CORONARY ARTERY STENOSIS [None]
  - HYPERTENSION [None]
  - COUGH [None]
  - FOOT FRACTURE [None]
  - RENAL FAILURE ACUTE [None]
  - CATARACT OPERATION [None]
  - CAROTID ARTERY STENOSIS [None]
  - HEART TRANSPLANT REJECTION [None]
  - GOUT [None]
  - TREATMENT NONCOMPLIANCE [None]
  - VASCULAR GRAFT COMPLICATION [None]
  - CEREBRAL INFARCTION [None]
  - GASTROOESOPHAGEAL REFLUX DISEASE [None]
  - ACUTE PRERENAL FAILURE [None]
  - ANAEMIA [None]
